FAERS Safety Report 15946454 (Version 3)
Quarter: 2019Q1

REPORT INFORMATION
  Report Type: Report from Study
  Country: US (occurrence: US)
  Receive Date: 20190211
  Receipt Date: 20190305
  Transmission Date: 20190417
  Serious: Yes (Hospitalization, Other)
  Sender: FDA-Public Use
  Company Number: US-ROCHE-2255053

PATIENT
  Sex: Female
  Weight: 58 kg

DRUGS (22)
  1. RECLAST [Concomitant]
     Active Substance: ZOLEDRONIC ACID
     Indication: OSTEOPOROSIS
     Dosage: ONGOING: YES
     Route: 065
  2. BACLOFEN. [Concomitant]
     Active Substance: BACLOFEN
     Indication: MUSCLE SPASMS
     Dosage: ONGOING: YES
     Route: 065
  3. LEVOTHYROXINE. [Concomitant]
     Active Substance: LEVOTHYROXINE
     Indication: HYPOTHYROIDISM
     Dosage: 1 TABLET ON MONDAY, WEDNESDAY, THURSDAY, SUNDAY ;ONGOING: YES
     Route: 065
     Dates: start: 1988
  4. LEVOTHYROXINE. [Concomitant]
     Active Substance: LEVOTHYROXINE
     Dosage: 1/2 TABLET ON TUESDAY AND SATURDAY ;ONGOING: YES
     Route: 065
     Dates: start: 1988
  5. AZELASTINE. [Concomitant]
     Active Substance: AZELASTINE HYDROCHLORIDE
     Indication: SEASONAL ALLERGY
     Dosage: ONGOING: YES
     Route: 065
  6. METOPROLOL. [Concomitant]
     Active Substance: METOPROLOL
     Indication: HYPERTENSION
     Dosage: ONGOING: YES
     Route: 065
     Dates: start: 2015
  7. FISH OIL [Concomitant]
     Active Substance: FISH OIL
     Dosage: ONGOING: YES
     Route: 065
  8. TRETINOIN. [Concomitant]
     Active Substance: TRETINOIN
     Dosage: .025% ;ONGOING: YES
     Route: 065
     Dates: start: 2017
  9. PRAVASTATIN SODIUM. [Concomitant]
     Active Substance: PRAVASTATIN SODIUM
     Indication: BLOOD CHOLESTEROL INCREASED
     Dosage: ONGOING: YES
     Route: 065
  10. VENLAFAXINE [Concomitant]
     Active Substance: VENLAFAXINE HYDROCHLORIDE
     Indication: DEPRESSION
     Dosage: ONGOING: YES
     Route: 065
  11. POTASSIUM CHLORIDE. [Concomitant]
     Active Substance: POTASSIUM CHLORIDE
     Dosage: ONGOING: YES
     Route: 065
  12. VITAMIN B12 [Concomitant]
     Active Substance: CYANOCOBALAMIN
     Dosage: ONGOING: YES
     Route: 060
  13. MONTELUKAST [Concomitant]
     Active Substance: MONTELUKAST SODIUM
     Indication: SEASONAL ALLERGY
     Dosage: ONGOING: YES
     Route: 065
  14. TRAMADOL. [Concomitant]
     Active Substance: TRAMADOL
     Indication: PAIN
     Dosage: ONGOING: YES
     Route: 065
     Dates: start: 201812
  15. ASPIRIN. [Concomitant]
     Active Substance: ASPIRIN
     Route: 065
  16. GLUCOSAMINE CHONDROITIN COMPLEX ADVANV (UNK INGREDIENTS) [Concomitant]
     Indication: ARTHRALGIA
     Dosage: ONGOING: YES
     Route: 065
  17. FLUTICASONE. [Concomitant]
     Active Substance: FLUTICASONE
     Indication: SEASONAL ALLERGY
     Dosage: ONGOING: YES
     Route: 065
  18. ARMODAFINIL. [Concomitant]
     Active Substance: ARMODAFINIL
     Dosage: ONGOING: YES
     Route: 065
  19. IRBESARTAN. [Concomitant]
     Active Substance: IRBESARTAN
     Indication: HYPERTENSION
     Dosage: ONGOING: YES
     Route: 065
     Dates: start: 201807
  20. OCREVUS [Suspect]
     Active Substance: OCRELIZUMAB
     Indication: SECONDARY PROGRESSIVE MULTIPLE SCLEROSIS
     Dosage: ONGOING: YES
     Route: 042
     Dates: start: 20180823
  21. MINOXIDIL. [Concomitant]
     Active Substance: MINOXIDIL
     Indication: HYPERTENSION
     Dosage: ONGOING: YES
     Route: 065
  22. OMEPRAZOLE. [Concomitant]
     Active Substance: OMEPRAZOLE
     Indication: GASTROOESOPHAGEAL REFLUX DISEASE
     Route: 065
     Dates: start: 2013

REACTIONS (10)
  - Intentional product use issue [Unknown]
  - Fluid overload [Recovering/Resolving]
  - Onychomadesis [Not Recovered/Not Resolved]
  - Infection [Unknown]
  - Localised infection [Not Recovered/Not Resolved]
  - Immunodeficiency [Not Recovered/Not Resolved]
  - Skin disorder [Not Recovered/Not Resolved]
  - Off label use [Unknown]
  - Skin swelling [Not Recovered/Not Resolved]
  - Peripheral swelling [Recovering/Resolving]
